FAERS Safety Report 12587813 (Version 14)
Quarter: 2019Q2

REPORT INFORMATION
  Report Type: Spontaneous
  Country: BR (occurrence: BR)
  Receive Date: 20160725
  Receipt Date: 20190502
  Transmission Date: 20190711
  Serious: Yes (Hospitalization, Other)
  Sender: FDA-Public Use
  Company Number: BR-GLAXOSMITHKLINE-BR2015GSK157867

PATIENT
  Age: 37 Year
  Sex: Female
  Weight: 56 kg

DRUGS (3)
  1. LOSARTAN POTASSIUM. [Concomitant]
     Active Substance: LOSARTAN POTASSIUM
     Indication: BLOOD PRESSURE INCREASED
     Dosage: UNK
  2. BENLYSTA [Suspect]
     Active Substance: BELIMUMAB
     Indication: SYSTEMIC LUPUS ERYTHEMATOSUS
     Dosage: 520 MG, UNK
     Dates: start: 20151028
  3. LOTAR (AMLODIPINE BESILATE + LOSARTAN POTASSIUM) [Concomitant]
     Indication: BLOOD PRESSURE INCREASED
     Dosage: UNK

REACTIONS (31)
  - Eye pain [Unknown]
  - Burning sensation [Unknown]
  - Contusion [Unknown]
  - Arthralgia [Unknown]
  - Rhinitis [Unknown]
  - Off label use [Recovered/Resolved]
  - Localised oedema [Unknown]
  - Cerebrovascular accident [Unknown]
  - Inappropriate schedule of product administration [Unknown]
  - Alopecia [Unknown]
  - Hypersensitivity [Unknown]
  - Sinusitis [Unknown]
  - Product availability issue [Unknown]
  - Drug hypersensitivity [Recovered/Resolved]
  - Frustration tolerance decreased [Unknown]
  - Decreased activity [Unknown]
  - Urticaria [Unknown]
  - Product dose omission [Not Recovered/Not Resolved]
  - Social problem [Unknown]
  - Circumstance or information capable of leading to medication error [Unknown]
  - Peripheral swelling [Recovering/Resolving]
  - Pericardial disease [Unknown]
  - Cellulitis [Recovered/Resolved]
  - Erythema [Unknown]
  - Rash [Unknown]
  - Hypertension [Unknown]
  - Thrombosis [Unknown]
  - Pyrexia [Unknown]
  - Myalgia [Unknown]
  - Arthropathy [Unknown]
  - Underdose [Unknown]

NARRATIVE: CASE EVENT DATE: 20160620
